FAERS Safety Report 7269470-8 (Version None)
Quarter: 2011Q1

REPORT INFORMATION
  Report Type: 
  Country: None (occurrence: None)
  Receive Date: 20110125
  Receipt Date: 20110111
  Transmission Date: 20110831
  Serious: Yes (Other)
  Sender: FDA-Public Use
  Company Number: DSJ-2011-00656

PATIENT
  Sex: Male

DRUGS (2)
  1. BENICAR HCT [Suspect]
     Indication: HYPERTENSION
     Dosage: 20/12.5 MG (1 IN 1 D),PER ORAL
     Route: 048
  2. EZETIMIBE [Concomitant]

REACTIONS (2)
  - HYPOTENSION [None]
  - DIZZINESS [None]
